FAERS Safety Report 19853873 (Version 2)
Quarter: 2021Q3

REPORT INFORMATION
  Report Type: Report from Study
  Country: US (occurrence: US)
  Receive Date: 20210920
  Receipt Date: 20210923
  Transmission Date: 20211014
  Serious: No
  Sender: FDA-Public Use
  Company Number: NVSC2021US212358

PATIENT
  Age: 52 Year
  Sex: Female

DRUGS (1)
  1. TREPROSTINIL. [Suspect]
     Active Substance: TREPROSTINIL
     Indication: PULMONARY ARTERIAL HYPERTENSION
     Dosage: 86 UNK, CONT (86 NG/KG/MIN)
     Route: 042
     Dates: start: 201902

REACTIONS (5)
  - Product leakage [Unknown]
  - Pyrexia [Unknown]
  - Device extension damage [Unknown]
  - Infection [Unknown]
  - Expired product administered [Unknown]

NARRATIVE: CASE EVENT DATE: 20210913
